FAERS Safety Report 9260552 (Version 1)
Quarter: 2013Q2

REPORT INFORMATION
  Report Type: Spontaneous
  Country: FR (occurrence: FR)
  Receive Date: 20130429
  Receipt Date: 20130429
  Transmission Date: 20140414
  Serious: Yes (Hospitalization)
  Sender: FDA-Public Use
  Company Number: FR-SANOFI-AVENTIS-2013SA041878

PATIENT
  Age: 87 Year
  Sex: Female

DRUGS (8)
  1. LASILIX [Suspect]
     Indication: PRODUCT USED FOR UNKNOWN INDICATION
     Route: 048
     Dates: end: 20130325
  2. APROVEL [Suspect]
     Indication: PRODUCT USED FOR UNKNOWN INDICATION
     Route: 048
     Dates: end: 20130325
  3. METOPROLOL [Concomitant]
     Dates: end: 20130325
  4. PLAVIX [Concomitant]
  5. ICAZ [Concomitant]
     Dates: end: 20130325
  6. ALLOPURINOL [Concomitant]
     Dates: end: 20130325
  7. ORAMORPH [Concomitant]
  8. LAROXYL [Concomitant]
     Dates: end: 20130325

REACTIONS (5)
  - Femur fracture [Unknown]
  - Acidosis [Unknown]
  - Respiratory distress [Unknown]
  - Renal failure [Recovered/Resolved]
  - Diarrhoea [Unknown]
